FAERS Safety Report 17881244 (Version 1)
Quarter: 2020Q2

REPORT INFORMATION
  Report Type: Spontaneous
  Country: GB (occurrence: GB)
  Receive Date: 20200610
  Receipt Date: 20200610
  Transmission Date: 20200714
  Serious: Yes (Hospitalization)
  Sender: FDA-Public Use
  Company Number: GB-MYLANLABS-2020M1055115

PATIENT
  Age: 51 Year
  Sex: Male

DRUGS (3)
  1. CLOZARIL [Suspect]
     Active Substance: CLOZAPINE
     Indication: SCHIZOPHRENIA
     Dosage: UNK
     Route: 048
     Dates: start: 20010701
  2. CLOZARIL [Suspect]
     Active Substance: CLOZAPINE
     Dosage: 50 MILLIGRAM, INCREASED THE DOSE HE IS TAKING BY 50MG
     Route: 048
     Dates: start: 20200601
  3. CLOZARIL [Suspect]
     Active Substance: CLOZAPINE
     Dosage: 1000 MILLIGRAM
     Route: 048
     Dates: start: 20200603

REACTIONS (2)
  - Mental disorder [Unknown]
  - Overdose [Unknown]

NARRATIVE: CASE EVENT DATE: 202006
